FAERS Safety Report 23672163 (Version 1)
Quarter: 2024Q1

REPORT INFORMATION
  Report Type: Report from Study
  Country: US (occurrence: US)
  Receive Date: 20240326
  Receipt Date: 20240326
  Transmission Date: 20240410
  Serious: Yes (Hospitalization)
  Sender: FDA-Public Use
  Company Number: US-LEO Pharma-368845

PATIENT
  Age: 62 Year
  Sex: Female

DRUGS (1)
  1. ADBRY [Suspect]
     Active Substance: TRALOKINUMAB-LDRM
     Indication: Dermatitis atopic
     Dates: start: 20221116, end: 202310

REACTIONS (5)
  - Chills [Unknown]
  - Abnormal loss of weight [Unknown]
  - Swelling [Unknown]
  - Bacteraemia [Unknown]
  - Lymphoma [Unknown]

NARRATIVE: CASE EVENT DATE: 20231101
